FAERS Safety Report 7587726-6 (Version None)
Quarter: 2011Q3

REPORT INFORMATION
  Report Type: 
  Country: None (occurrence: None)
  Receive Date: 20110704
  Receipt Date: 20110621
  Transmission Date: 20111222
  Serious: Yes (Hospitalization, Other)
  Sender: FDA-Public Use
  Company Number: US-ELI_LILLY_AND_COMPANY-US201008008931

PATIENT
  Sex: Female

DRUGS (22)
  1. CYMBALTA [Concomitant]
     Dosage: 60 MG, UNK
  2. NASAL SPRAY [Concomitant]
  3. ANTIHYPERTENSIVES [Concomitant]
  4. VITAMIN D [Concomitant]
  5. PERCOCET [Concomitant]
     Dosage: 1 D/F, 3/D
  6. OMEPRAZOLE [Concomitant]
     Dosage: 20 MG, UNK
  7. AMBIEN [Concomitant]
  8. ASPIRIN [Concomitant]
     Dosage: 81 MG, UNK
  9. MOBIC [Concomitant]
  10. SPIRONOLACTONE [Concomitant]
     Dosage: 25 MG, UNK
  11. LORTAB [Concomitant]
     Indication: PAIN
  12. MULTI-VITAMIN [Concomitant]
  13. FORTEO [Suspect]
     Indication: OSTEOPOROSIS
     Dosage: 20 UG, DAILY (1/D)
     Dates: start: 20100501, end: 20100802
  14. LOVASTATIN [Concomitant]
     Dosage: 10 MG, UNK
  15. AXURA [Concomitant]
  16. FORTEO [Suspect]
     Dosage: 20 UG, QD
  17. VITAMIN D [Concomitant]
  18. SINEMET [Concomitant]
  19. CLONAZEPAM [Concomitant]
     Dosage: 5 MG, 2/D
  20. FORTEO [Suspect]
     Dosage: 20 UG, QD
  21. AZOR [Concomitant]
     Dosage: 5 MG, UNK
  22. NEURONTIN [Concomitant]

REACTIONS (22)
  - SPINAL DISORDER [None]
  - DEVICE COMPONENT ISSUE [None]
  - PYREXIA [None]
  - SURGERY [None]
  - ARTHROPATHY [None]
  - FLANK PAIN [None]
  - LIMB DISCOMFORT [None]
  - GAIT DISTURBANCE [None]
  - CYST [None]
  - ATROPHY [None]
  - HYPOAESTHESIA [None]
  - MOVEMENT DISORDER [None]
  - MALAISE [None]
  - ARTHRITIS [None]
  - FALL [None]
  - MEMORY IMPAIRMENT [None]
  - ANIMAL BITE [None]
  - SWELLING [None]
  - LIGAMENT INJURY [None]
  - DRUG DOSE OMISSION [None]
  - HALLUCINATION [None]
  - ILL-DEFINED DISORDER [None]
